FAERS Safety Report 10029766 (Version 1)
Quarter: 2014Q1

REPORT INFORMATION
  Report Type: Spontaneous
  Country: US (occurrence: None)
  Receive Date: 20140321
  Receipt Date: 20140321
  Transmission Date: 20141002
  Serious: Yes (Hospitalization)
  Sender: FDA-Public Use
  Company Number: None

PATIENT
  Age: 39 Year
  Sex: Male
  Weight: 175 kg

DRUGS (1)
  1. CEFUROXIME [Suspect]
     Indication: CELLULITIS
     Route: 048
     Dates: start: 20140308, end: 20140311

REACTIONS (1)
  - Hypersensitivity [None]
